FAERS Safety Report 7814496-6 (Version None)
Quarter: 2011Q4

REPORT INFORMATION
  Report Type: 
  Country: None (occurrence: None)
  Receive Date: 20111014
  Receipt Date: 20111011
  Transmission Date: 20120403
  Serious: Yes (Death)
  Sender: FDA-Public Use
  Company Number: PHHY2011NL90021

PATIENT
  Sex: Female

DRUGS (2)
  1. ZOMETA [Suspect]
     Indication: BREAST CANCER METASTATIC
     Dosage: 4 MG/5 ML, CONCENTRATE FOR SOLUTION FOR IV INFUSION
  2. ZOMETA [Suspect]
     Dosage: 4 MG/5 ML, CONCENTRATE FOR SOLUTION FOR IV INFUSION
     Dates: start: 20110919

REACTIONS (1)
  - DEATH [None]
